FAERS Safety Report 4531896-0 (Version None)
Quarter: 2004Q4

REPORT INFORMATION
  Report Type: 
  Country: None (occurrence: None)
  Receive Date: 20041216
  Receipt Date: 20041129
  Transmission Date: 20050328
  Serious: Yes (Hospitalization, Other)
  Sender: FDA-Public Use
  Company Number: USA041184446

PATIENT
  Age: 76 Year
  Sex: Female

DRUGS (6)
  1. HUMULIN-HUMAN NPH INSULIN (RDNA) (HUMUAN INSULIN (RD [Suspect]
     Indication: DIABETES MELLITUS
     Dosage: 30 U DAY
     Dates: start: 20041122
  2. HUMULIN-HUMAN NPH INSULIN (RDNA) (HUMUAN INSULIN (RD [Suspect]
     Indication: DIABETES MELLITUS
     Dates: start: 19850101
  3. LITHIUM [Concomitant]
  4. DOXEPIN HCL [Concomitant]
  5. ASACOL [Concomitant]
  6. ACETYLSALICYLIC ACID SRT [Concomitant]

REACTIONS (10)
  - BLOOD GLUCOSE INCREASED [None]
  - FOOT AMPUTATION [None]
  - GANGRENE [None]
  - HYPOACUSIS [None]
  - HYPOAESTHESIA [None]
  - INFECTION [None]
  - LEG AMPUTATION [None]
  - PAIN IN EXTREMITY [None]
  - PHARMACEUTICAL PRODUCT COMPLAINT [None]
  - TOE AMPUTATION [None]
